FAERS Safety Report 9728306 (Version 1)
Quarter: 2013Q4

REPORT INFORMATION
  Report Type: Spontaneous
  Country: US (occurrence: None)
  Receive Date: 20131203
  Receipt Date: 20131203
  Transmission Date: 20140711
  Serious: Yes (Hospitalization, Disabling)
  Sender: FDA-Public Use
  Company Number: None

PATIENT
  Age: 73 Year
  Sex: Female
  Weight: 136 kg

DRUGS (1)
  1. CIPRO 500MG [Suspect]
     Indication: DIVERTICULUM
     Dates: start: 20130413, end: 20130424

REACTIONS (2)
  - Arthralgia [None]
  - Gait disturbance [None]
